FAERS Safety Report 24357447 (Version 1)
Quarter: 2024Q3

REPORT INFORMATION
  Report Type: Spontaneous
  Country: US (occurrence: US)
  Receive Date: 20240924
  Receipt Date: 20240924
  Transmission Date: 20241017
  Serious: Yes (Hospitalization)
  Sender: PFIZER
  Company Number: US-PFIZER INC-PV202400122855

PATIENT
  Age: 63 Year
  Sex: Female
  Weight: 62.3 kg

DRUGS (7)
  1. RIFABUTIN [Suspect]
     Active Substance: RIFABUTIN
     Indication: Pulmonary tuberculosis
     Dosage: 450 MG, DAILY
  2. ISONIAZID [Concomitant]
     Active Substance: ISONIAZID
     Indication: Pulmonary tuberculosis
     Dosage: 300 MG
  3. RIFAMPIN [Concomitant]
     Active Substance: RIFAMPIN
     Indication: Pulmonary tuberculosis
     Dosage: UNK
  4. PYRIDOXINE [Concomitant]
     Active Substance: PYRIDOXINE
     Indication: Pulmonary tuberculosis
     Dosage: 50 MG, DAILY
  5. DOLUTEGRAVIR [Concomitant]
     Active Substance: DOLUTEGRAVIR
     Indication: Acquired immunodeficiency syndrome
     Dosage: 50 MG
  6. EMTRICITABINE [Concomitant]
     Active Substance: EMTRICITABINE
     Indication: Acquired immunodeficiency syndrome
     Dosage: 200 MG
  7. TENOFOVIR [Concomitant]
     Active Substance: TENOFOVIR
     Indication: Acquired immunodeficiency syndrome
     Dosage: 300 MG, DAILY

REACTIONS (3)
  - Hypopyon [Recovered/Resolved]
  - Uveitis [Recovered/Resolved]
  - Retinal vascular disorder [Recovered/Resolved]
